FAERS Safety Report 18168630 (Version 1)
Quarter: 2020Q3

REPORT INFORMATION
  Report Type: Spontaneous
  Country: US (occurrence: US)
  Receive Date: 20200819
  Receipt Date: 20200819
  Transmission Date: 20201103
  Serious: Yes (Other)
  Sender: FDA-Public Use
  Company Number: US-BAYER-2020-166803

PATIENT
  Sex: Female

DRUGS (2)
  1. BAYER ASPIRIN EXTRA STRENGTH CAPLETS [Suspect]
     Active Substance: ASPIRIN
     Indication: MUSCLE SPASMS
     Dosage: 1 OR 2
     Route: 048
  2. SEROQUEL [Suspect]
     Active Substance: QUETIAPINE FUMARATE

REACTIONS (5)
  - Foreign body in throat [Unknown]
  - Oropharyngeal discomfort [Unknown]
  - Cough [Unknown]
  - Dyspnoea [Unknown]
  - Drug effective for unapproved indication [Unknown]
